FAERS Safety Report 14151632 (Version 1)
Quarter: 2017Q4

REPORT INFORMATION
  Report Type: Spontaneous
  Country: US (occurrence: None)
  Receive Date: 20171101
  Receipt Date: 20171101
  Transmission Date: 20180321
  Serious: Yes (Other)
  Sender: FDA-Public Use
  Company Number: None

PATIENT
  Age: 66 Year
  Sex: Female
  Weight: 61.24 kg

DRUGS (12)
  1. VITAMIN D3 [Concomitant]
     Active Substance: CHOLECALCIFEROL
  2. VITAMIN C [Concomitant]
     Active Substance: ASCORBIC ACID
  3. CALCIUM [Concomitant]
     Active Substance: CALCIUM
  4. MULTIVITAMIN [Concomitant]
     Active Substance: VITAMINS
  5. LATANOPROST OPHTHALMIC SOLUTION [Concomitant]
     Active Substance: LATANOPROST
  6. VITAMIN B COMPLEX [Concomitant]
     Active Substance: CYANOCOBALAMIN\DEXPANTHENOL\NIACINAMIDE\PYRIDOXINE HYDROCHLORIDE\RIBOFLAVIN 5^-PHOSPHATE SODIUM\THIAMINE HYDROCHLORIDE\VITAMIN B COMPLEX
  7. LABETOLOL [Suspect]
     Active Substance: LABETALOL HYDROCHLORIDE
     Indication: HYPERTENSION
     Dosage: FREQUENCY - TWICE DAILY - 1 EVERY 12 HOURS
     Route: 048
  8. GARLIC. [Concomitant]
     Active Substance: GARLIC
  9. FISH OIL [Concomitant]
     Active Substance: FISH OIL
  10. BLOOD PRESSURE KIT [Concomitant]
  11. TUMERIC [Concomitant]
     Active Substance: HERBALS\TURMERIC
  12. CUMMIN [Concomitant]

REACTIONS (15)
  - Headache [None]
  - Mouth swelling [None]
  - Swelling [None]
  - Abnormal dreams [None]
  - Cheilitis [None]
  - Abdominal distension [None]
  - Peripheral swelling [None]
  - Thinking abnormal [None]
  - Lip swelling [None]
  - Fatigue [None]
  - Muscle spasms [None]
  - Swelling face [None]
  - Decreased appetite [None]
  - Swollen tongue [None]
  - Insomnia [None]
